FAERS Safety Report 10742669 (Version 5)
Quarter: 2015Q2

REPORT INFORMATION
  Report Type: Spontaneous
  Country: US (occurrence: US)
  Receive Date: 20150127
  Receipt Date: 20150402
  Transmission Date: 20150821
  Serious: Yes (Other)
  Sender: FDA-Public Use
  Company Number: US-ASTELLAS-2015US002049

PATIENT
  Age: 74 Year
  Sex: Male

DRUGS (21)
  1. XTANDI [Suspect]
     Active Substance: ENZALUTAMIDE
     Indication: PROSTATE CANCER
     Dosage: 160 MG (4 CAPSULE), ONCE DAILY
     Route: 048
     Dates: start: 20141231
  2. CEPHALEXIN                         /00145501/ [Concomitant]
     Active Substance: CEPHALEXIN
     Indication: PRODUCT USED FOR UNKNOWN INDICATION
     Route: 048
     Dates: start: 20150113
  3. CALCITRIOL. [Concomitant]
     Active Substance: CALCITRIOL
     Indication: CHRONIC KIDNEY DISEASE
     Dosage: 1 DF, DAILY AT BEDTIME ON EMPTY STOMACH
     Route: 048
     Dates: start: 20140617
  4. RENVELA [Concomitant]
     Active Substance: SEVELAMER CARBONATE
     Indication: CHRONIC KIDNEY DISEASE
     Dosage: 01 TABLET WITH EACH MEAL
     Route: 048
     Dates: start: 20131217
  5. XGEVA [Concomitant]
     Active Substance: DENOSUMAB
     Indication: PRODUCT USED FOR UNKNOWN INDICATION
     Dosage: 120 MG/1.7 ML, OTHER
     Route: 058
     Dates: start: 20140411
  6. ZOLADEX [Concomitant]
     Active Substance: GOSERELIN ACETATE
     Indication: PRODUCT USED FOR UNKNOWN INDICATION
     Dosage: 10.8 MG SUBCUTANEOUS IMPLANT, Q3MONTHS
     Route: 058
  7. POLYSACCHARIDE IRON COMPLEX [Concomitant]
     Indication: AORTIC ANEURYSM
     Route: 048
     Dates: start: 20150122
  8. AMLODIPINE BESYLATE. [Concomitant]
     Active Substance: AMLODIPINE BESYLATE
     Indication: HYPERTENSION
     Dosage: 10 MG, EVERY MORNING
     Route: 048
     Dates: start: 20150122
  9. SIMVASTATIN. [Concomitant]
     Active Substance: SIMVASTATIN
     Indication: HYPERLIPIDAEMIA
     Route: 048
     Dates: start: 20140416
  10. CALCITROL                          /00508501/ [Concomitant]
     Active Substance: CALCIUM CARBONATE\ERGOCALCIFEROL\RETINOL
     Indication: PRODUCT USED FOR UNKNOWN INDICATION
     Dosage: 25 MCG 01 CAPSULE DAILY AT BEDTIME ON EMPTY STOMACH
     Route: 048
     Dates: start: 20140617
  11. COMBIGAN [Concomitant]
     Active Substance: BRIMONIDINE TARTRATE\TIMOLOL MALEATE
     Indication: PRODUCT USED FOR UNKNOWN INDICATION
     Dosage: 0.2-0.5%, OTHER
     Route: 047
     Dates: start: 20090827
  12. METOCHLOPRAMIDE HCL [Concomitant]
     Indication: PROSTATE CANCER
     Route: 048
     Dates: start: 20150130
  13. XTANDI [Suspect]
     Active Substance: ENZALUTAMIDE
     Dosage: 80 MG (2 CAPSULES),  ONCE DAILY
     Route: 048
     Dates: start: 201502
  14. POLYSACCHARIDE IRON COMPLEX [Concomitant]
     Indication: IRON DEFICIENCY
  15. POLYSACCHARIDE IRON COMPLEX [Concomitant]
     Indication: GLUCOSE TOLERANCE IMPAIRED
  16. SODIUM BICARBONATE. [Concomitant]
     Active Substance: SODIUM BICARBONATE
     Indication: CHRONIC KIDNEY DISEASE
     Route: 048
     Dates: start: 20131217
  17. GUANFACINE HCL [Concomitant]
     Indication: HYPERTENSION
     Dosage: 1 DF, ONCE DAILY AT BEDTIME
     Route: 048
     Dates: start: 20150122
  18. ASPIRIN. [Concomitant]
     Active Substance: ASPIRIN
     Indication: HAEMATURIA
     Dosage: 1 TABLET DAILY
     Route: 048
     Dates: start: 20150122
  19. DORZOLAMIDE HCL [Concomitant]
     Active Substance: DORZOLAMIDE HYDROCHLORIDE
     Indication: HAEMATURIA
     Dosage: UNK UNK, AS DIRECTED
     Route: 047
     Dates: start: 20150122
  20. LUMIGAN [Concomitant]
     Active Substance: BIMATOPROST
     Indication: PRODUCT USED FOR UNKNOWN INDICATION
     Dosage: 1 DROP INTO BOTH EYES, ONCE DAILY
     Route: 047
     Dates: start: 20140811
  21. RENA-VITE [Concomitant]
     Active Substance: VITAMINS
     Indication: CHRONIC KIDNEY DISEASE
     Route: 048
     Dates: start: 20150122

REACTIONS (6)
  - Chills [Recovered/Resolved]
  - Blood creatinine increased [Not Recovered/Not Resolved]
  - Asthenia [Recovered/Resolved]
  - Nausea [Recovered/Resolved]
  - Blood pressure fluctuation [Not Recovered/Not Resolved]
  - Therapy change [Unknown]

NARRATIVE: CASE EVENT DATE: 20150130
